FAERS Safety Report 17196853 (Version 2)
Quarter: 2021Q2

REPORT INFORMATION
  Report Type: Report from Study
  Country: US (occurrence: US)
  Receive Date: 20191224
  Receipt Date: 20210504
  Transmission Date: 20210716
  Serious: No
  Sender: FDA-Public Use
  Company Number: US-SHIRE-US201944969

PATIENT
  Sex: Female

DRUGS (4)
  1. RUCONEST [Concomitant]
     Active Substance: HUMAN C1-ESTERASE INHIBITOR
  2. LANADELUMAB [Suspect]
     Active Substance: LANADELUMAB
     Indication: HEREDITARY ANGIOEDEMA
     Dosage: 300 MILLIGRAM, Q4WEEKS
     Route: 058
     Dates: start: 20200728
  3. LANADELUMAB [Suspect]
     Active Substance: LANADELUMAB
     Indication: IMMUNE SYSTEM DISORDER
  4. LEVOTHYROXINE. [Concomitant]
     Active Substance: LEVOTHYROXINE

REACTIONS (2)
  - Exposure during pregnancy [Recovering/Resolving]
  - Hereditary angioedema [Unknown]
